FAERS Safety Report 21101278 (Version 2)
Quarter: 2022Q3

REPORT INFORMATION
  Report Type: Spontaneous
  Country: NZ (occurrence: NZ)
  Receive Date: 20220719
  Receipt Date: 20220729
  Transmission Date: 20221026
  Serious: Yes (Other)
  Sender: FDA-Public Use
  Company Number: NZ-NOVARTISPH-NVSC2022NZ160550

PATIENT
  Age: 67 Year
  Sex: Female

DRUGS (16)
  1. METFORMIN HYDROCHLORIDE\VILDAGLIPTIN [Suspect]
     Active Substance: METFORMIN HYDROCHLORIDE\VILDAGLIPTIN
     Indication: Product used for unknown indication
     Dosage: 50/1 GM, BID
     Route: 065
     Dates: start: 202106, end: 20220407
  2. VILDAGLIPTIN [Suspect]
     Active Substance: VILDAGLIPTIN
     Indication: Product used for unknown indication
     Dosage: UNK
     Route: 065
  3. HUMIRA [Suspect]
     Active Substance: ADALIMUMAB
     Indication: Rheumatoid arthritis
     Dosage: (40 MG/0.8 ML, STOP DATE-  FEB/ MAR 2022)
     Route: 058
     Dates: start: 202011, end: 202203
  4. ESCITALOPRAM [Concomitant]
     Active Substance: ESCITALOPRAM OXALATE
     Indication: Depression
     Dosage: 200 MG, QD
     Route: 048
     Dates: start: 201509
  5. QUINAPRIL [Concomitant]
     Active Substance: QUINAPRIL
     Indication: Hypertension
     Dosage: 10 MG, QD
     Route: 048
     Dates: start: 201610
  6. ALLOPURINOL [Concomitant]
     Active Substance: ALLOPURINOL
     Indication: Product used for unknown indication
     Dosage: 200 MG, QD
     Route: 048
     Dates: start: 201509
  7. PREDNISONE [Concomitant]
     Active Substance: PREDNISONE
     Indication: Product used for unknown indication
     Dosage: 40 MG
     Route: 065
  8. PREDNISONE [Concomitant]
     Active Substance: PREDNISONE
     Dosage: 20 MG (FOR 6 WEEKS)
     Route: 065
  9. PREDNISONE [Concomitant]
     Active Substance: PREDNISONE
     Dosage: 15 MG, QD
     Route: 065
  10. PREDNISONE [Concomitant]
     Active Substance: PREDNISONE
     Dosage: 5 MG, QD (5-10MG DAILY)
     Route: 065
  11. CHOLECALCIFEROL [Concomitant]
     Active Substance: CHOLECALCIFEROL
     Indication: Vitamin supplementation
     Dosage: 1.25 MG, QD
     Route: 048
     Dates: start: 201509
  12. HYDROXOCOBALAMIN [Concomitant]
     Active Substance: HYDROXOCOBALAMIN
     Indication: Pernicious anaemia
     Dosage: (1000 MCG/1 ML)
     Route: 030
     Dates: start: 202001
  13. HYDROXYCHLOROQUINE [Concomitant]
     Active Substance: HYDROXYCHLOROQUINE
     Indication: Rheumatoid arthritis
     Dosage: 200 MG, QD
     Route: 048
     Dates: start: 201509
  14. OMEPRAZOLE [Concomitant]
     Active Substance: OMEPRAZOLE
     Indication: Gastrooesophageal reflux disease
     Dosage: 20 MG, PRN
     Route: 048
     Dates: start: 201509
  15. AMLODIPINE [Concomitant]
     Active Substance: AMLODIPINE BESYLATE
     Indication: Hypertension
     Dosage: 10 MG, QD
     Route: 048
     Dates: start: 202001
  16. DOXYCYCLINE [Concomitant]
     Active Substance: DOXYCYCLINE
     Indication: Product used for unknown indication
     Dosage: UNK
     Route: 065

REACTIONS (7)
  - Type 2 diabetes mellitus [Unknown]
  - Dermatitis bullous [Recovering/Resolving]
  - Rash maculo-papular [Recovering/Resolving]
  - Rash pruritic [Recovering/Resolving]
  - Blister [Recovering/Resolving]
  - Adverse drug reaction [Recovering/Resolving]
  - Hyperglycaemia [Recovering/Resolving]

NARRATIVE: CASE EVENT DATE: 20211201
